FAERS Safety Report 8371212-X (Version None)
Quarter: 2012Q2

REPORT INFORMATION
  Report Type: 
  Country: None (occurrence: None)
  Receive Date: 20120518
  Receipt Date: 20120515
  Transmission Date: 20120825
  Serious: Yes (Other)
  Sender: FDA-Public Use
  Company Number: PHHY2012GB041258

PATIENT
  Age: 69 Year
  Sex: Female
  Weight: 63 kg

DRUGS (10)
  1. PRILOSEC [Suspect]
     Dates: start: 20120503
  2. IBUPROFEN [Concomitant]
     Dates: start: 20120207, end: 20120306
  3. ZOPICLONE [Concomitant]
     Dates: start: 20120207, end: 20120306
  4. ZOPICLONE [Concomitant]
     Dates: start: 20120503
  5. ATORVASTATIN CALCIUM [Concomitant]
     Dates: start: 20120424
  6. ATORVASTATIN CALCIUM [Concomitant]
     Dates: start: 20120131, end: 20120228
  7. ATORVASTATIN CALCIUM [Concomitant]
     Dates: start: 20120301, end: 20120423
  8. FLUOXETINE [Concomitant]
     Dates: start: 20120131, end: 20120228
  9. FLUOXETINE [Concomitant]
     Dates: start: 20120424
  10. FLUOXETINE [Concomitant]
     Dates: start: 20120301, end: 20120423

REACTIONS (2)
  - LIP BLISTER [None]
  - LIP ULCERATION [None]
